FAERS Safety Report 8993621 (Version 1)
Quarter: 2013Q1

REPORT INFORMATION
  Report Type: Spontaneous
  Country: TW (occurrence: TW)
  Receive Date: 20130102
  Receipt Date: 20130102
  Transmission Date: 20140127
  Serious: Yes (Other)
  Sender: FDA-Public Use
  Company Number: TW-ASTRAZENECA-2012SE95529

PATIENT
  Age: 47 Year
  Sex: Female

DRUGS (4)
  1. QUETIAPINE [Suspect]
     Indication: SCHIZOPHRENIA
     Route: 048
  2. QUETIAPINE [Suspect]
     Indication: SCHIZOPHRENIA
     Dosage: TAPERED TO 300 MG DAILY
     Route: 048
  3. QUETIAPINE [Suspect]
     Indication: SCHIZOPHRENIA
     Route: 048
  4. QUETIAPINE [Suspect]
     Indication: SCHIZOPHRENIA
     Dosage: GRADUALLY INCREASED TO 400 MG DAILY
     Route: 048

REACTIONS (2)
  - Drug-induced liver injury [Recovered/Resolved]
  - Oedema peripheral [Recovered/Resolved]
